FAERS Safety Report 7557812-5 (Version None)
Quarter: 2011Q2

REPORT INFORMATION
  Report Type: 
  Country: None (occurrence: None)
  Receive Date: 20110620
  Receipt Date: 20110609
  Transmission Date: 20111010
  Serious: Yes (Other)
  Sender: FDA-Public Use
  Company Number: GB-ASTRAZENECA-2011SE35285

PATIENT
  Age: 89 Year
  Sex: Female

DRUGS (11)
  1. ASPIRIN [Concomitant]
  2. QUININE SULFATE [Concomitant]
     Route: 048
  3. SIMVASTATIN [Concomitant]
     Route: 048
  4. POLYETHYLENE GLYCOL [Concomitant]
  5. NEFOPAM [Concomitant]
     Route: 048
     Dates: start: 20110511, end: 20110518
  6. ACETAMINOPHEN [Concomitant]
  7. AMITRIPTYLINE HCL [Concomitant]
     Route: 048
  8. LISINOPRIL [Suspect]
     Indication: HYPERTENSION
     Route: 048
     Dates: start: 20100101, end: 20110518
  9. LACTULOSE [Concomitant]
  10. AMLODIPINE [Concomitant]
     Route: 048
  11. OMEPRAZOLE [Concomitant]
     Route: 048

REACTIONS (2)
  - SALIVARY GLAND ENLARGEMENT [None]
  - SWOLLEN TONGUE [None]
